FAERS Safety Report 10727519 (Version 3)
Quarter: 2015Q2

REPORT INFORMATION
  Report Type: Report from Study
  Country: US (occurrence: US)
  Receive Date: 20150121
  Receipt Date: 20150618
  Transmission Date: 20150821
  Serious: Yes (Life-Threatening, Hospitalization, Disabling, Other)
  Sender: FDA-Public Use
  Company Number: US-GILEAD-2015-0132762

PATIENT
  Age: 75 Year
  Sex: Female

DRUGS (13)
  1. AMBRISENTAN [Suspect]
     Active Substance: AMBRISENTAN
     Indication: PULMONARY ARTERIAL HYPERTENSION
     Dosage: 10 MG, QD
     Route: 065
     Dates: start: 20121204
  2. MULTI VITAMIN [Concomitant]
     Active Substance: VITAMINS
  3. PROCRIT [Concomitant]
     Active Substance: ERYTHROPOIETIN
  4. ZITHROMAX [Concomitant]
     Active Substance: AZITHROMYCIN DIHYDRATE
  5. PROZAC [Concomitant]
     Active Substance: FLUOXETINE HYDROCHLORIDE
  6. LEVOTHROID [Concomitant]
     Active Substance: LEVOTHYROXINE SODIUM
  7. SILDENAFIL. [Concomitant]
     Active Substance: SILDENAFIL
  8. CELLCEPT [Concomitant]
     Active Substance: MYCOPHENOLATE MOFETIL\MYCOPHENOLATE MOFETIL HYDROCHLORIDE
  9. LASIX [Concomitant]
     Active Substance: FUROSEMIDE
  10. POTASSIUM [Concomitant]
     Active Substance: POTASSIUM
  11. PREDNISONE. [Concomitant]
     Active Substance: PREDNISONE
  12. ADCIRCA [Concomitant]
     Active Substance: TADALAFIL
  13. VITAMIN D [Concomitant]
     Active Substance: CHOLECALCIFEROL

REACTIONS (3)
  - Oesophageal ulcer haemorrhage [Not Recovered/Not Resolved]
  - Gastrointestinal haemorrhage [Recovered/Resolved]
  - Oesophagitis haemorrhagic [Recovered/Resolved]

NARRATIVE: CASE EVENT DATE: 20141229
